FAERS Safety Report 15269557 (Version 2)
Quarter: 2018Q3

REPORT INFORMATION
  Report Type: Spontaneous
  Country: AU (occurrence: AU)
  Receive Date: 20180813
  Receipt Date: 20180821
  Transmission Date: 20181010
  Serious: Yes (Other)
  Sender: FDA-Public Use
  Company Number: AU-CLINIGEN GROUP PLC/ CLINIGEN HEALTHCARE LTD-AU-CLGN-18-00298

PATIENT
  Age: 76 Year
  Sex: Male

DRUGS (9)
  1. PREDNEFRIN FORTE [Concomitant]
     Active Substance: PHENYLEPHRINE HYDROCHLORIDE\PREDNISOLONE ACETATE
     Indication: NECROTISING RETINITIS
     Route: 047
  2. CYCLOPENTOLATE. [Concomitant]
     Active Substance: CYCLOPENTOLATE
     Indication: NECROTISING RETINITIS
     Route: 047
  3. ACYCLOVIR. [Concomitant]
     Active Substance: ACYCLOVIR
     Route: 042
  4. ZOSTAVAX [Suspect]
     Active Substance: VARICELLA-ZOSTER VIRUS STRAIN OKA/MERCK LIVE ANTIGEN
     Indication: IMMUNISATION
  5. ZOSTAVAX [Suspect]
     Active Substance: VARICELLA-ZOSTER VIRUS STRAIN OKA/MERCK LIVE ANTIGEN
     Indication: IMMUNISATION
  6. GANCICLOVIR. [Concomitant]
     Active Substance: GANCICLOVIR
     Indication: NECROTISING RETINITIS
     Route: 031
  7. FOSCARNET SODIUM. [Suspect]
     Active Substance: FOSCARNET SODIUM
     Indication: OPHTHALMIC HERPES ZOSTER
     Route: 031
     Dates: start: 2016
  8. FOSCARNET SODIUM. [Suspect]
     Active Substance: FOSCARNET SODIUM
     Indication: VACCINATION COMPLICATION
  9. VALACYCLOVIR HYDROCHLORIDE. [Concomitant]
     Active Substance: VALACYCLOVIR HYDROCHLORIDE
     Indication: NECROTISING RETINITIS
     Route: 048

REACTIONS (2)
  - Off label use [Unknown]
  - Retinal artery occlusion [Unknown]
